FAERS Safety Report 9218060 (Version 2)
Quarter: 2013Q2

REPORT INFORMATION
  Report Type: Spontaneous
  Country: US (occurrence: US)
  Receive Date: 20130408
  Receipt Date: 20130521
  Transmission Date: 20140414
  Serious: Yes (Death, Hospitalization)
  Sender: FDA-Public Use
  Company Number: US-GLAXOSMITHKLINE-A0866937A

PATIENT
  Age: 71 Year
  Sex: Male

DRUGS (2)
  1. ADVAIR [Suspect]
     Indication: CHRONIC OBSTRUCTIVE PULMONARY DISEASE
     Route: 055
  2. UNKNOWN [Concomitant]

REACTIONS (4)
  - Death [Fatal]
  - Adverse event [Unknown]
  - Treatment noncompliance [Unknown]
  - Fall [Unknown]
